FAERS Safety Report 20164791 (Version 4)
Quarter: 2022Q1

REPORT INFORMATION
  Report Type: Spontaneous
  Country: US (occurrence: US)
  Receive Date: 20211209
  Receipt Date: 20220322
  Transmission Date: 20220423
  Serious: Yes (Hospitalization, Other)
  Sender: FDA-Public Use
  Company Number: US-PROCTER_AND_GAMBLE-GS21113450

PATIENT
  Sex: Female

DRUGS (1)
  1. SECRET DRY LAVENDER [Suspect]
     Active Substance: ALUMINUM CHLOROHYDRATE
     Route: 061

REACTIONS (5)
  - Invasive ductal breast carcinoma [Unknown]
  - Lymphoma [Unknown]
  - Dehydration [Unknown]
  - Weight decreased [Unknown]
  - Alopecia [Unknown]
